FAERS Safety Report 11703980 (Version 1)
Quarter: 2015Q4

REPORT INFORMATION
  Report Type: Spontaneous
  Country: US (occurrence: None)
  Receive Date: 20151105
  Receipt Date: 20151105
  Transmission Date: 20160304
  Serious: Yes (Disabling)
  Sender: FDA-Public Use
  Company Number: None

PATIENT
  Age: 38 Year
  Sex: Male
  Weight: 106.6 kg

DRUGS (1)
  1. CIPRO [Suspect]
     Active Substance: CIPROFLOXACIN HYDROCHLORIDE
     Indication: CELLULITIS
     Dates: start: 20150528, end: 20150528

REACTIONS (10)
  - Extrasystoles [None]
  - Disorientation [None]
  - Hyperhidrosis [None]
  - Nervous system disorder [None]
  - Heart rate irregular [None]
  - Panic attack [None]
  - Heart rate increased [None]
  - Hypertension [None]
  - Sleep apnoea syndrome [None]
  - Confusional state [None]

NARRATIVE: CASE EVENT DATE: 20150528
